FAERS Safety Report 14917689 (Version 4)
Quarter: 2018Q2

REPORT INFORMATION
  Report Type: Spontaneous
  Country: FR (occurrence: FR)
  Receive Date: 20180521
  Receipt Date: 20180622
  Transmission Date: 20180711
  Serious: Yes (Other)
  Sender: FDA-Public Use
  Company Number: FR-TEVA-2018-FR-894895

PATIENT
  Age: 80 Year
  Sex: Female

DRUGS (1)
  1. CELECOXIB TEVA 200 MG [Suspect]
     Active Substance: CELECOXIB
     Indication: ARTHROPATHY
     Dosage: 2 DOSAGE FORMS DAILY; ONE CAPSULE TAKEN IN THE MORNING AND IN THE EVENING
     Route: 048
     Dates: start: 20180406, end: 20180418

REACTIONS (20)
  - Toxic skin eruption [Unknown]
  - Skin exfoliation [Unknown]
  - Gamma-glutamyltransferase abnormal [Unknown]
  - Photosensitivity reaction [Unknown]
  - Generalised erythema [Recovered/Resolved]
  - Pyrexia [Recovered/Resolved]
  - Eye burns [Unknown]
  - Swelling face [Unknown]
  - Skin exfoliation [Recovered/Resolved]
  - Ocular discomfort [Unknown]
  - Fatigue [Not Recovered/Not Resolved]
  - Dysphagia [Recovered/Resolved]
  - Pigmentation disorder [Unknown]
  - Hot flush [Unknown]
  - Vaginal haemorrhage [Not Recovered/Not Resolved]
  - Lip swelling [Recovered/Resolved]
  - Gingival swelling [Recovered/Resolved]
  - Eyelid oedema [Recovered/Resolved]
  - Dry mouth [Unknown]
  - Oral discomfort [Unknown]

NARRATIVE: CASE EVENT DATE: 20180419
